FAERS Safety Report 4699754-9 (Version None)
Quarter: 2005Q2

REPORT INFORMATION
  Report Type: 
  Country: None (occurrence: None)
  Receive Date: 20050623
  Receipt Date: 20050615
  Transmission Date: 20051028
  Serious: No
  Sender: FDA-Public Use
  Company Number: ZONI002179

PATIENT
  Age: 67 Year
  Sex: Female

DRUGS (1)
  1. ZONISAMIDE [Suspect]
     Indication: EPILEPSY
     Dosage: ORAL
     Route: 048

REACTIONS (8)
  - CALCULUS URETERIC [None]
  - CONVULSION [None]
  - HAEMODIALYSIS [None]
  - HYDRONEPHROSIS [None]
  - HYPERKALAEMIA [None]
  - PYREXIA [None]
  - RENAL FAILURE ACUTE [None]
  - URETERAL STENT INSERTION [None]
